FAERS Safety Report 8654640 (Version 3)
Quarter: 2013Q4

REPORT INFORMATION
  Report Type: Spontaneous
  Country: US (occurrence: US)
  Receive Date: 20120709
  Receipt Date: 20131210
  Transmission Date: 20140711
  Serious: Yes (Other)
  Sender: FDA-Public Use
  Company Number: US-PFIZER INC-2012161490

PATIENT
  Age: 49 Year
  Sex: Male

DRUGS (2)
  1. CHANTIX [Suspect]
     Indication: SMOKING CESSATION THERAPY
     Dosage: UNK
     Dates: start: 20070101, end: 20070301
  2. CHANTIX [Suspect]
     Dosage: 1 MG, UNK
     Dates: start: 20090411

REACTIONS (5)
  - Depression [Unknown]
  - Memory impairment [Unknown]
  - Anger [Unknown]
  - Anxiety [Unknown]
  - Mental disorder [Unknown]
